FAERS Safety Report 18651310 (Version 11)
Quarter: 2021Q3

REPORT INFORMATION
  Report Type: Report from Study
  Country: CA (occurrence: CA)
  Receive Date: 20201222
  Receipt Date: 20210805
  Transmission Date: 20211014
  Serious: Yes (Other)
  Sender: FDA-Public Use
  Company Number: CA-NALPROPION PHARMACEUTICALS INC.-2020-011977

PATIENT

DRUGS (18)
  1. ASPIRIN                            /00002701/ [Concomitant]
     Active Substance: ASPIRIN
     Indication: THROMBOSIS
     Dosage: 1 IN 1 D
     Route: 048
  2. CONTRAVE [Suspect]
     Active Substance: BUPROPION HYDROCHLORIDE\NALTREXONE HYDROCHLORIDE
     Dosage: 90/8 MG, 1 TABLET IN THE MORNING AND 1 IN EVENING
     Route: 048
     Dates: start: 20210103, end: 20210104
  3. CONTRAVE [Suspect]
     Active Substance: BUPROPION HYDROCHLORIDE\NALTREXONE HYDROCHLORIDE
     Dosage: 90/8 MG, 2 TABLETS IN THE MORNING AND 1 TABLET IN EVENING 07/MAY/2021:WEEK 2 (2ND ATTEMPT TREATMENT)
     Route: 048
     Dates: start: 20210404, end: 20210506
  4. MORPHINE [Suspect]
     Active Substance: MORPHINE
     Indication: RENAL PAIN
     Dosage: UNK
     Route: 065
     Dates: start: 20210104, end: 20210107
  5. CLOPIDOGREL [Concomitant]
     Active Substance: CLOPIDOGREL BISULFATE
     Indication: THROMBOSIS
     Dosage: 1 IN 1 D
     Route: 048
  6. CONTRAVE [Suspect]
     Active Substance: BUPROPION HYDROCHLORIDE\NALTREXONE HYDROCHLORIDE
     Dosage: 90/8 MG, ONE TABLET IN THE MORNING AND ONE IN EVENING
     Route: 048
     Dates: start: 20201206, end: 20201212
  7. BOSENTAN. [Concomitant]
     Active Substance: BOSENTAN
     Indication: PRINZMETAL ANGINA
     Dosage: 1 IN 1 D
     Route: 048
  8. CONTRAVE [Suspect]
     Active Substance: BUPROPION HYDROCHLORIDE\NALTREXONE HYDROCHLORIDE
     Dosage: 90/8 MG, 1 TABLET IN THE MORNING
     Route: 048
     Dates: start: 20210201, end: 202102
  9. DILTIAZEM. [Concomitant]
     Active Substance: DILTIAZEM
     Indication: PRINZMETAL ANGINA
     Dosage: 1 IN 1 D
     Route: 048
  10. CONTRAVE [Suspect]
     Active Substance: BUPROPION HYDROCHLORIDE\NALTREXONE HYDROCHLORIDE
     Dosage: 90/8 MG, 2 TABLETS IN THE MORNING AND ONE IN EVENING
     Route: 048
     Dates: start: 20201213, end: 20210102
  11. CONTRAVE [Suspect]
     Active Substance: BUPROPION HYDROCHLORIDE\NALTREXONE HYDROCHLORIDE
     Dosage: 90/8MG, 2 TABLETS IN THE MORNING AND 2 TABLETS IN EVENING
     Route: 048
     Dates: start: 20210402, end: 20210403
  12. DEXILANT [Concomitant]
     Active Substance: DEXLANSOPRAZOLE
     Indication: GASTROOESOPHAGEAL REFLUX DISEASE
     Dosage: 1 IN 1 D
     Route: 048
  13. CONTRAVE [Suspect]
     Active Substance: BUPROPION HYDROCHLORIDE\NALTREXONE HYDROCHLORIDE
     Indication: WEIGHT CONTROL
     Dosage: 90/8 MG, ONE TABLET IN THE MORNING
     Route: 048
     Dates: start: 20201201, end: 20201205
  14. CONTRAVE [Suspect]
     Active Substance: BUPROPION HYDROCHLORIDE\NALTREXONE HYDROCHLORIDE
     Dosage: 90/8 MG, 1 TABLET IN THE MORNING AND 1 IN EVENING
     Route: 048
     Dates: start: 20210107, end: 2021
  15. CONTRAVE [Suspect]
     Active Substance: BUPROPION HYDROCHLORIDE\NALTREXONE HYDROCHLORIDE
     Dosage: 90/8 MG, 1 TABLET IN THE MORNING (SECOND ATTEMPT)
     Route: 048
     Dates: start: 20210312, end: 20210401
  16. CONTRAVE [Suspect]
     Active Substance: BUPROPION HYDROCHLORIDE\NALTREXONE HYDROCHLORIDE
     Dosage: 90/8 MG, 2 TABLETS IN THE MORNING AND TWO TABLETS IN EVENING
     Route: 048
     Dates: start: 20210507
  17. PLAVIX [Interacting]
     Active Substance: CLOPIDOGREL BISULFATE
     Indication: MUSCLE SPASTICITY
     Dosage: 1 IN 1 D
     Route: 048
     Dates: end: 20210311
  18. SPIRONOLACTONE. [Concomitant]
     Active Substance: SPIRONOLACTONE
     Indication: PRINZMETAL ANGINA
     Dosage: 1 IN 1 D
     Route: 048

REACTIONS (16)
  - Feeling hot [Unknown]
  - Abnormal dreams [Unknown]
  - Nephrolithiasis [Recovered/Resolved]
  - Insomnia [Recovered/Resolved]
  - Diverticulitis [Unknown]
  - Muscle spasms [Not Recovered/Not Resolved]
  - Nocturia [Not Recovered/Not Resolved]
  - Nausea [Recovered/Resolved]
  - Abdominal pain [Unknown]
  - Fatigue [Recovering/Resolving]
  - Product dispensing error [Unknown]
  - Hospitalisation [Unknown]
  - Symptom recurrence [Unknown]
  - Drug interaction [Unknown]
  - Headache [Unknown]
  - Drug titration error [Unknown]

NARRATIVE: CASE EVENT DATE: 2020
